FAERS Safety Report 5839601-2 (Version None)
Quarter: 2008Q3

REPORT INFORMATION
  Report Type: 
  Country: None (occurrence: None)
  Receive Date: 20080811
  Receipt Date: 20080807
  Transmission Date: 20090109
  Serious: Yes (Other)
  Sender: FDA-Public Use
  Company Number: JP-JNJFOC-20080800264

PATIENT
  Age: 57 Year
  Sex: Female

DRUGS (4)
  1. ITRACONAZOLE [Suspect]
     Indication: ONYCHOMYCOSIS
     Route: 048
  2. CALSLOT [Interacting]
     Indication: DRUG USE FOR UNKNOWN INDICATION
     Route: 048
  3. ALFAROL [Concomitant]
     Route: 048
  4. PRAVASTATIN [Concomitant]
     Route: 048

REACTIONS (4)
  - DRUG INTERACTION [None]
  - HYPOAESTHESIA [None]
  - RESPIRATORY DISTRESS [None]
  - SENSATION OF HEAVINESS [None]
